FAERS Safety Report 21348991 (Version 1)
Quarter: 2022Q3

REPORT INFORMATION
  Report Type: Spontaneous
  Country: DE (occurrence: DE)
  Receive Date: 20220919
  Receipt Date: 20220919
  Transmission Date: 20221027
  Serious: Yes (Other)
  Sender: FDA-Public Use
  Company Number: None

PATIENT
  Age: 60 Year
  Sex: Female
  Weight: 90 kg

DRUGS (1)
  1. LAGEVRIO [Suspect]
     Active Substance: MOLNUPIRAVIR
     Indication: Coronavirus infection
     Dosage: 4 CAPSULES OF 200 MILLIGRAMS (MG) EVERY 12 HOURS
     Route: 048
     Dates: start: 20220802, end: 20220806

REACTIONS (6)
  - Ocular hyperaemia [Unknown]
  - Vasodilatation [Recovering/Resolving]
  - Eye haemorrhage [Unknown]
  - Chest discomfort [Recovered/Resolved]
  - Foreign body sensation in eyes [Unknown]
  - Ocular discomfort [Unknown]

NARRATIVE: CASE EVENT DATE: 20220801
